FAERS Safety Report 8020658-8 (Version None)
Quarter: 2012Q1

REPORT INFORMATION
  Report Type: 
  Country: None (occurrence: None)
  Receive Date: 20120103
  Receipt Date: 20111223
  Transmission Date: 20120608
  Serious: Yes (Hospitalization, Other)
  Sender: FDA-Public Use
  Company Number: US-ASTRAZENECA-2011SE77960

PATIENT
  Age: 69 Year
  Sex: Female

DRUGS (2)
  1. ALBUTEROL [Concomitant]
  2. SYMBICORT [Suspect]
     Route: 055

REACTIONS (3)
  - MALAISE [None]
  - DRUG DOSE OMISSION [None]
  - BRONCHITIS [None]
